FAERS Safety Report 19865599 (Version 1)
Quarter: 2021Q3

REPORT INFORMATION
  Report Type: Report from Study
  Country: AU (occurrence: AU)
  Receive Date: 20210922
  Receipt Date: 20210922
  Transmission Date: 20211014
  Serious: Yes (Other)
  Sender: FDA-Public Use
  Company Number: AU-REGENERON PHARMACEUTICALS, INC.-2021-87747

PATIENT

DRUGS (2)
  1. EYLEA [Suspect]
     Active Substance: AFLIBERCEPT
     Indication: NEOVASCULAR AGE-RELATED MACULAR DEGENERATION
     Dosage: INTRAVITREAL INJECTION TO RIGHT EYE
     Route: 031
     Dates: start: 202003
  2. EYLEA [Suspect]
     Active Substance: AFLIBERCEPT
     Dosage: LAST RIGHT EYE INJECTION
     Route: 031
     Dates: start: 202107, end: 202107

REACTIONS (7)
  - Product colour issue [Unknown]
  - Eye injury [Unknown]
  - Lacrimation increased [Unknown]
  - Blindness transient [Recovered/Resolved with Sequelae]
  - Injection site pain [Unknown]
  - Keratorhexis [Recovered/Resolved]
  - Vision blurred [Recovered/Resolved with Sequelae]

NARRATIVE: CASE EVENT DATE: 202107
